FAERS Safety Report 20168268 (Version 1)
Quarter: 2021Q4

REPORT INFORMATION
  Report Type: Spontaneous
  Country: CA (occurrence: CA)
  Receive Date: 20211210
  Receipt Date: 20211210
  Transmission Date: 20220303
  Serious: Yes (Other)
  Sender: FDA-Public Use
  Company Number: CA-CELLTRION INC.-2021CA016896

PATIENT

DRUGS (1)
  1. INFLECTRA [Suspect]
     Active Substance: INFLIXIMAB-DYYB
     Indication: Crohn^s disease
     Dosage: 700 MG 1 EVERY 4 WEEKS
     Route: 042

REACTIONS (7)
  - Clostridium difficile colitis [Unknown]
  - Pseudomonas infection [Unknown]
  - Cellulitis [Unknown]
  - Arthritis [Unknown]
  - Impaired healing [Unknown]
  - Staphylococcal infection [Unknown]
  - Off label use [Unknown]
